FAERS Safety Report 4873526-4 (Version None)
Quarter: 2006Q1

REPORT INFORMATION
  Report Type: 
  Country: None (occurrence: None)
  Receive Date: 20060105
  Receipt Date: 20050907
  Transmission Date: 20060701
  Serious: Yes (Hospitalization, Disabling)
  Sender: FDA-Public Use
  Company Number: US-MERCK-0509USA00878

PATIENT
  Age: 65 Year
  Sex: Male
  Weight: 93 kg

DRUGS (5)
  1. VIOXX [Suspect]
     Indication: ARTHRITIS
     Route: 048
     Dates: start: 19990821, end: 19990824
  2. VIOXX [Suspect]
     Route: 048
     Dates: end: 20040901
  3. HYTRIN [Concomitant]
     Route: 065
  4. DEMADEX [Concomitant]
     Route: 065
  5. NASACORT [Concomitant]
     Route: 065

REACTIONS (34)
  - ADVERSE DRUG REACTION [None]
  - AORTIC VALVE SCLEROSIS [None]
  - ARTERIAL STENOSIS [None]
  - ASTHENIA [None]
  - ATRIOVENTRICULAR BLOCK FIRST DEGREE [None]
  - BRADYCARDIA [None]
  - CAROTID ARTERY STENOSIS [None]
  - CEREBRAL ARTERIOSCLEROSIS [None]
  - CEREBRAL INFARCTION [None]
  - CEREBROVASCULAR ACCIDENT [None]
  - CHEST PAIN [None]
  - CLUMSINESS [None]
  - COLD SWEAT [None]
  - DEHYDRATION [None]
  - DIABETES MELLITUS NON-INSULIN-DEPENDENT [None]
  - DIZZINESS [None]
  - DRUG HYPERSENSITIVITY [None]
  - DYSPNOEA [None]
  - ELECTROCARDIOGRAM ST-T CHANGE [None]
  - FATIGUE [None]
  - GOUTY ARTHRITIS [None]
  - HYPERTENSION [None]
  - MENISCUS LESION [None]
  - MICROANGIOPATHY [None]
  - NAUSEA [None]
  - ORTHOSTATIC HYPOTENSION [None]
  - PARAESTHESIA [None]
  - PERIPHERAL ARTERIAL OCCLUSIVE DISEASE [None]
  - POST PROCEDURAL NAUSEA [None]
  - RENAL FAILURE [None]
  - SINUS BRADYCARDIA [None]
  - VERTIGO [None]
  - VISION BLURRED [None]
  - VISUAL ACUITY REDUCED [None]
